FAERS Safety Report 5684383-0 (Version None)
Quarter: 2008Q1

REPORT INFORMATION
  Report Type: 
  Country: None (occurrence: None)
  Receive Date: 20080328
  Receipt Date: 20080128
  Transmission Date: 20080703
  Serious: Yes (Death)
  Sender: FDA-Public Use
  Company Number: US-TYCO HEALTHCARE/MALLINCKRODT-T200800487

PATIENT

DRUGS (7)
  1. ACETAMINOPHEN AND HYDROCODONE BITARTRATE [Suspect]
     Route: 048
  2. FLUOXETINE [Suspect]
     Route: 048
  3. QUETIAPINE FUMARATE [Suspect]
     Route: 048
  4. BUPROPION HCL [Suspect]
     Route: 048
  5. AMPHETAMINE SULFATE [Suspect]
     Route: 048
  6. CARISOPRODOL [Suspect]
     Route: 048
  7. ALPRAZOLAM [Suspect]
     Route: 048

REACTIONS (1)
  - COMPLETED SUICIDE [None]
